FAERS Safety Report 12906879 (Version 1)
Quarter: 2016Q4

REPORT INFORMATION
  Report Type: Spontaneous
  Country: BR (occurrence: BR)
  Receive Date: 20161103
  Receipt Date: 20161103
  Transmission Date: 20170207
  Serious: Yes (Other)
  Sender: FDA-Public Use
  Company Number: BR-PFIZER INC-2016507710

PATIENT
  Age: 58 Year
  Sex: Male
  Weight: 96 kg

DRUGS (3)
  1. XALATAN [Suspect]
     Active Substance: LATANOPROST
     Indication: GLAUCOMA
     Dosage: ONE DROP EACH EYE , DAILY
     Route: 047
     Dates: start: 2011
  2. CAPTOPRIL. [Concomitant]
     Active Substance: CAPTOPRIL
     Indication: HYPERTENSION
     Dosage: 3 TABLETS (0.75 MG TOTAL), DAILY
     Route: 048
  3. CLAROFT [Concomitant]
     Indication: GLAUCOMA
     Dosage: 1 DROP, 2X/DAY (IN THE MORNING AND IN THE AFTERNOON)
     Route: 047

REACTIONS (3)
  - Drug effect incomplete [Unknown]
  - Blindness [Unknown]
  - Cataract [Unknown]
